FAERS Safety Report 10259651 (Version 1)
Quarter: 2014Q2

REPORT INFORMATION
  Report Type: Spontaneous
  Country: NL (occurrence: NL)
  Receive Date: 20140625
  Receipt Date: 20140625
  Transmission Date: 20141212
  Serious: Yes (Other)
  Sender: FDA-Public Use
  Company Number: NL-WATSON-2014-13513

PATIENT
  Age: 37 Year
  Sex: Female

DRUGS (2)
  1. METRONIDAZOLE [Suspect]
     Indication: GINGIVITIS
     Dosage: 500 MG, DAILY
     Route: 048
     Dates: start: 20140522, end: 20140526
  2. AMOXICILLIN (UNKNOWN) [Suspect]
     Indication: GINGIVITIS
     Dosage: 500 MG, DAILY
     Route: 048
     Dates: start: 20140522

REACTIONS (3)
  - Depressed mood [Recovered/Resolved]
  - Drug interaction [Recovered/Resolved]
  - Agitation [Recovered/Resolved]
